FAERS Safety Report 6739241-7 (Version None)
Quarter: 2010Q2

REPORT INFORMATION
  Report Type: 
  Country: None (occurrence: None)
  Receive Date: 20100525
  Receipt Date: 20100520
  Transmission Date: 20101027
  Serious: Yes (Life-Threatening)
  Sender: FDA-Public Use
  Company Number: JP-ASTRAZENECA-2010SE18714

PATIENT
  Age: 25683 Day
  Sex: Female
  Weight: 58 kg

DRUGS (4)
  1. ARIMIDEX [Suspect]
     Indication: BREAST CANCER
     Route: 048
     Dates: start: 20090107, end: 20091017
  2. LOXONIN [Concomitant]
     Indication: PERIARTHRITIS
     Route: 048
     Dates: start: 20090916, end: 20091016
  3. RINDERON [Concomitant]
     Indication: PERIARTHRITIS
     Route: 014
     Dates: start: 20091016, end: 20091016
  4. XYLOCAINE [Concomitant]
     Indication: PERIARTHRITIS
     Route: 014
     Dates: start: 20091016, end: 20091016

REACTIONS (1)
  - INTERSTITIAL LUNG DISEASE [None]
